FAERS Safety Report 16266127 (Version 1)
Quarter: 2019Q2

REPORT INFORMATION
  Report Type: Report from Study
  Country: DE (occurrence: DE)
  Receive Date: 20190502
  Receipt Date: 20190502
  Transmission Date: 20190711
  Serious: Yes (Other)
  Sender: FDA-Public Use
  Company Number: DE-PFIZER INC-2019165864

PATIENT
  Age: 63 Year
  Sex: Female

DRUGS (5)
  1. PERTUZUMAB. [Suspect]
     Active Substance: PERTUZUMAB
     Dosage: 420 MG, UNK
     Route: 042
  2. TRASTUZUMAB. [Suspect]
     Active Substance: TRASTUZUMAB
     Dosage: 514.5 MG, UNK
     Route: 042
  3. PERTUZUMAB. [Suspect]
     Active Substance: PERTUZUMAB
     Indication: BREAST CANCER
     Dosage: 514.5 MG, UNK
     Route: 065
     Dates: start: 20171020
  4. PACLITAXEL. [Suspect]
     Active Substance: PACLITAXEL
     Indication: BREAST CANCER
     Dosage: 159 MG, WEEKLY
     Route: 042
     Dates: start: 20171020
  5. TRASTUZUMAB. [Suspect]
     Active Substance: TRASTUZUMAB
     Indication: BREAST CANCER
     Dosage: 693 MG, UNK
     Route: 042
     Dates: start: 20171020

REACTIONS (7)
  - Device dislocation [Recovered/Resolved]
  - Cystitis [Recovered/Resolved]
  - Spinal column injury [Recovered/Resolved]
  - Ligament rupture [Recovered/Resolved]
  - Dysphagia [Recovered/Resolved]
  - Polyneuropathy [Not Recovered/Not Resolved]
  - Nasopharyngitis [Recovered/Resolved]

NARRATIVE: CASE EVENT DATE: 20171215
